FAERS Safety Report 13047183 (Version 2)
Quarter: 2016Q4

REPORT INFORMATION
  Report Type: Spontaneous
  Country: JP (occurrence: JP)
  Receive Date: 20161220
  Receipt Date: 20161227
  Transmission Date: 20170207
  Serious: No
  Sender: FDA-Public Use
  Company Number: JP-TEVA-2016-JP-002990J

PATIENT
  Age: 69 Year
  Sex: Male

DRUGS (3)
  1. EPADEL [Concomitant]
     Active Substance: ICOSAPENT
     Dosage: 1800 MILLIGRAM DAILY;
     Route: 048
  2. CERCINE [Suspect]
     Active Substance: DIAZEPAM
     Indication: SEDATIVE THERAPY
     Route: 042
     Dates: start: 20161202, end: 20161202
  3. BUFFERIN [Concomitant]
     Active Substance: ASPIRIN
     Dosage: 81 MILLIGRAM DAILY;
     Route: 048

REACTIONS (3)
  - Erythema [Unknown]
  - Vasculitis [Unknown]
  - Product preparation error [Unknown]

NARRATIVE: CASE EVENT DATE: 20161202
